FAERS Safety Report 15631348 (Version 2)
Quarter: 2018Q4

REPORT INFORMATION
  Report Type: Spontaneous
  Country: US (occurrence: US)
  Receive Date: 20181119
  Receipt Date: 20181218
  Transmission Date: 20190205
  Serious: No
  Sender: FDA-Public Use
  Company Number: US-ASTRAZENECA-2018SF44543

PATIENT
  Sex: Female

DRUGS (1)
  1. SYMBICORT [Suspect]
     Active Substance: BUDESONIDE\FORMOTEROL FUMARATE DIHYDRATE
     Indication: CHRONIC OBSTRUCTIVE PULMONARY DISEASE
     Dosage: 160/4.5 MCG, ONE INHALATION IN THE MORNING ON MONDAY, WEDNESDAY AND FRIDAY
     Route: 055

REACTIONS (4)
  - Device failure [Unknown]
  - Throat irritation [Recovered/Resolved]
  - Device malfunction [Unknown]
  - Intentional product use issue [Unknown]
